FAERS Safety Report 4990055-8 (Version None)
Quarter: 2006Q2

REPORT INFORMATION
  Report Type: 
  Country: None (occurrence: None)
  Receive Date: 20060503
  Receipt Date: 20060406
  Transmission Date: 20061013
  Serious: Yes (Hospitalization)
  Sender: FDA-Public Use
  Company Number: US-BOEHRINGER INGELHEIM PHARMACEUTICALS, INC.-2006-BP-03938PF

PATIENT
  Sex: Male

DRUGS (12)
  1. SPIRIVA [Suspect]
     Indication: CHRONIC OBSTRUCTIVE PULMONARY DISEASE
     Route: 055
  2. SPIRIVA [Suspect]
     Indication: EMPHYSEMA
  3. LIPITOR [Concomitant]
  4. LISINOPRIL [Concomitant]
  5. NORVASC [Concomitant]
  6. EFFEXOR XR [Concomitant]
  7. RHINOCORT [Concomitant]
  8. COMBIVENT [Concomitant]
     Route: 055
  9. CLONAZEPAM [Concomitant]
  10. ASPIRIN [Concomitant]
  11. OXYGEN [Concomitant]
  12. ALBUTEROL [Concomitant]
     Route: 055

REACTIONS (5)
  - CHRONIC OBSTRUCTIVE PULMONARY DISEASE [None]
  - EMPHYSEMA [None]
  - HYPERLIPIDAEMIA [None]
  - HYPOTENSION [None]
  - RHINITIS ALLERGIC [None]
